FAERS Safety Report 17872282 (Version 6)
Quarter: 2022Q4

REPORT INFORMATION
  Report Type: Report from Study
  Country: US (occurrence: US)
  Receive Date: 20200608
  Receipt Date: 20221104
  Transmission Date: 20230113
  Serious: No
  Sender: FDA-Public Use
  Company Number: None

PATIENT
  Age: 79 Year
  Sex: Female

DRUGS (1)
  1. TABRECTA [Suspect]
     Active Substance: CAPMATINIB
     Indication: Non-small cell lung cancer
     Dosage: UNK
     Route: 065
     Dates: start: 201905

REACTIONS (11)
  - Hyperhidrosis [Unknown]
  - Dizziness [Unknown]
  - Swelling face [Unknown]
  - Malaise [Unknown]
  - Pleural fluid analysis abnormal [Unknown]
  - Pain [Unknown]
  - Arthritis [Unknown]
  - Asthma [Unknown]
  - Nausea [Unknown]
  - Peripheral swelling [Unknown]
  - Prescribed underdose [Unknown]

NARRATIVE: CASE EVENT DATE: 20190501
